FAERS Safety Report 12525601 (Version 1)
Quarter: 2016Q3

REPORT INFORMATION
  Report Type: Spontaneous
  Country: US (occurrence: US)
  Receive Date: 20160705
  Receipt Date: 20160705
  Transmission Date: 20161109
  Serious: No
  Sender: FDA-Public Use
  Company Number: US-JNJFOC-20160617167

PATIENT
  Sex: Male

DRUGS (2)
  1. INVEGA [Suspect]
     Active Substance: PALIPERIDONE
     Indication: DEPRESSION
     Route: 048
     Dates: start: 20160609
  2. INVEGA [Suspect]
     Active Substance: PALIPERIDONE
     Indication: NERVOUSNESS
     Route: 048
     Dates: start: 20160609

REACTIONS (3)
  - Product use issue [Unknown]
  - Constipation [Unknown]
  - Off label use [Unknown]
